FAERS Safety Report 10919877 (Version 1)
Quarter: 2015Q1

REPORT INFORMATION
  Report Type: Spontaneous
  Country: US (occurrence: US)
  Receive Date: 20150317
  Receipt Date: 20150317
  Transmission Date: 20150721
  Serious: Yes (Other)
  Sender: FDA-Public Use
  Company Number: US-JNJFOC-20150221064

PATIENT

DRUGS (2)
  1. FISH OIL [Suspect]
     Active Substance: FISH OIL
     Indication: SUICIDAL BEHAVIOUR
     Dosage: 30 TABS AT ONCE
     Route: 065
     Dates: start: 20110905, end: 20110905
  2. BENADRYL ALLERGY [Suspect]
     Active Substance: DIPHENHYDRAMINE HYDROCHLORIDE
     Indication: SUICIDAL BEHAVIOUR
     Dosage: 25 MG, 20-25 TABS AT ONCE
     Route: 048
     Dates: start: 20110905, end: 20110905

REACTIONS (3)
  - Suicide attempt [None]
  - Exposure via ingestion [None]
  - Intentional overdose [Unknown]

NARRATIVE: CASE EVENT DATE: 20110905
